FAERS Safety Report 17060231 (Version 1)
Quarter: 2019Q4

REPORT INFORMATION
  Report Type: Spontaneous
  Country: DE (occurrence: DE)
  Receive Date: 20191121
  Receipt Date: 20191121
  Transmission Date: 20200122
  Serious: Yes (Other)
  Sender: FDA-Public Use
  Company Number: DE-BAYER-2019-203526

PATIENT
  Sex: Female

DRUGS (1)
  1. GADOVIST [Suspect]
     Active Substance: GADOBUTROL
     Dosage: SEVERAL TIMES
     Route: 042

REACTIONS (18)
  - Muscle spasms [None]
  - Muscular weakness [None]
  - Skin hypertrophy [None]
  - Visual impairment [None]
  - Tinnitus [None]
  - Peripheral swelling [None]
  - Bone pain [None]
  - Body temperature decreased [None]
  - Skin induration [None]
  - Balance disorder [None]
  - Nephrogenic systemic fibrosis [None]
  - Alopecia [None]
  - Memory impairment [None]
  - Pruritus [None]
  - Skin disorder [None]
  - Dry eye [None]
  - Joint noise [None]
  - Muscle twitching [None]
